FAERS Safety Report 6354356-3 (Version None)
Quarter: 2009Q3

REPORT INFORMATION
  Report Type: 
  Country: None (occurrence: None)
  Receive Date: 20090914
  Receipt Date: 20090902
  Transmission Date: 20100115
  Serious: Yes (Other)
  Sender: FDA-Public Use
  Company Number: US-BIOGENIDEC-2009BI025023

PATIENT
  Age: 45 Year
  Sex: Female
  Weight: 84 kg

DRUGS (5)
  1. TYSABRI [Suspect]
     Indication: MULTIPLE SCLEROSIS
     Route: 042
     Dates: start: 20090602, end: 20090813
  2. TYSABRI [Suspect]
     Route: 042
     Dates: start: 20090602, end: 20090813
  3. NEURONTIN [Concomitant]
     Indication: DRUG USE FOR UNKNOWN INDICATION
  4. MULTI-VITAMINS [Concomitant]
  5. VITAMIN D [Concomitant]

REACTIONS (2)
  - BREAST CANCER STAGE III [None]
  - BREAST PAIN [None]
